FAERS Safety Report 22659620 (Version 1)
Quarter: 2023Q2

REPORT INFORMATION
  Report Type: Spontaneous
  Country: US (occurrence: US)
  Receive Date: 20230630
  Receipt Date: 20230630
  Transmission Date: 20230721
  Serious: Yes (Other)
  Sender: FDA-Public Use
  Company Number: US-IBSA PHARMA INC.-2023IBS000600

PATIENT

DRUGS (11)
  1. TIROSINT [Suspect]
     Active Substance: LEVOTHYROXINE SODIUM
     Indication: Product used for unknown indication
     Dosage: UNK
     Route: 065
  2. KORLYM [Suspect]
     Active Substance: MIFEPRISTONE
     Indication: Cushing^s syndrome
     Dosage: 300 MILLIGRAM, QD
     Route: 048
     Dates: start: 202209, end: 2022
  3. KORLYM [Suspect]
     Active Substance: MIFEPRISTONE
     Dosage: 300 MILLIGRAM, QD
     Route: 048
     Dates: start: 20220615, end: 2022
  4. KORLYM [Suspect]
     Active Substance: MIFEPRISTONE
     Dosage: 150 MILLIGRAM, QD
     Route: 048
     Dates: start: 2022, end: 2022
  5. KORLYM [Suspect]
     Active Substance: MIFEPRISTONE
     Dosage: 150 MILLIGRAM, QD
     Route: 048
     Dates: start: 2022, end: 2023
  6. KORLYM [Suspect]
     Active Substance: MIFEPRISTONE
     Dosage: 300 MILLIGRAM, QD
     Route: 048
     Dates: start: 2023, end: 202303
  7. KORLYM [Suspect]
     Active Substance: MIFEPRISTONE
     Dosage: 150 MILLIGRAM, QD
     Route: 048
     Dates: start: 202303
  8. CALTRATE [Concomitant]
     Active Substance: CALCIUM CARBONATE
     Indication: Product used for unknown indication
     Dosage: UNK
  9. OCUVITE [ASCORBIC ACID;BETACAROTENE;COPPER;TOCOFERSOLAN;ZINC] [Concomitant]
     Indication: Product used for unknown indication
  10. VITAMIN D NOS [Concomitant]
     Active Substance: VITAMIN D NOS
     Indication: Product used for unknown indication
  11. .ALPHA.-TOCOPHEROL [Concomitant]
     Active Substance: .ALPHA.-TOCOPHEROL
     Indication: Product used for unknown indication

REACTIONS (27)
  - Diverticulitis [Recovering/Resolving]
  - Precancerous cells present [Unknown]
  - Large intestine polyp [Recovered/Resolved]
  - Blood glucose fluctuation [Not Recovered/Not Resolved]
  - Stress [Unknown]
  - Influenza like illness [Unknown]
  - Hypersomnia [Recovering/Resolving]
  - Asthenia [Recovering/Resolving]
  - Feeling jittery [Unknown]
  - COVID-19 [Recovered/Resolved]
  - Myalgia [Unknown]
  - Vertigo [Not Recovered/Not Resolved]
  - Abdominal discomfort [Unknown]
  - Tension [Unknown]
  - Disturbance in attention [Unknown]
  - Hyperhidrosis [Unknown]
  - Pyrexia [Recovering/Resolving]
  - Diarrhoea [Not Recovered/Not Resolved]
  - Anxiety [Unknown]
  - Fatigue [Not Recovered/Not Resolved]
  - Arthralgia [Recovering/Resolving]
  - Insomnia [Unknown]
  - Heart rate increased [Unknown]
  - Alopecia [Unknown]
  - Thyroid function test abnormal [Unknown]
  - Blood thyroid stimulating hormone increased [Unknown]
  - Inappropriate schedule of product administration [Unknown]

NARRATIVE: CASE EVENT DATE: 20220101
